FAERS Safety Report 5621359-3 (Version None)
Quarter: 2008Q1

REPORT INFORMATION
  Report Type: 
  Country: None (occurrence: None)
  Receive Date: 20080129
  Receipt Date: 20080114
  Transmission Date: 20080703
  Serious: Yes (Death)
  Sender: FDA-Public Use
  Company Number: B0503101A

PATIENT
  Age: 59 Year
  Sex: Female

DRUGS (5)
  1. BUPROPION HYDROCHLORIDE [Suspect]
     Dosage: ORAL
     Route: 048
  2. LORAZEPAM [Suspect]
     Dosage: ORAL
     Route: 048
  3. HALOPERIDOL [Suspect]
     Dosage: ORAL
     Route: 048
  4. GABAPENTIN [Suspect]
     Dosage: ORAL
     Route: 048
  5. AMANTADINE HCL [Suspect]
     Dosage: ORAL
     Route: 048

REACTIONS (1)
  - COMPLETED SUICIDE [None]
